FAERS Safety Report 5204785-6 (Version None)
Quarter: 2007Q1

REPORT INFORMATION
  Report Type: 
  Country: None (occurrence: None)
  Receive Date: 20070110
  Receipt Date: 20060725
  Transmission Date: 20070707
  Serious: No
  Sender: FDA-Public Use
  Company Number: US-BRISTOL-MYERS SQUIBB COMPANY-13445168

PATIENT
  Age: 61 Year
  Sex: Female
  Weight: 68 kg

DRUGS (12)
  1. ABILIFY [Suspect]
     Indication: BIPOLAR DISORDER
     Dates: start: 20060606, end: 20060717
  2. ABILIFY [Suspect]
     Dates: start: 20060718
  3. LANOXIN [Concomitant]
  4. SYNTHROID [Concomitant]
  5. VYTORIN [Concomitant]
  6. ESTRATEST [Concomitant]
  7. VAGIFEM [Concomitant]
  8. KLONOPIN [Concomitant]
  9. WELLBUTRIN [Concomitant]
  10. MULTI-VITAMIN [Concomitant]
  11. ASCORBIC ACID [Concomitant]
  12. XALATAN [Concomitant]

REACTIONS (7)
  - BLOOD PRESSURE INCREASED [None]
  - DISTURBANCE IN ATTENTION [None]
  - DIZZINESS [None]
  - INCONTINENCE [None]
  - LIBIDO DECREASED [None]
  - RESTLESSNESS [None]
  - VISUAL DISTURBANCE [None]
